FAERS Safety Report 14020028 (Version 1)
Quarter: 2017Q3

REPORT INFORMATION
  Report Type: Spontaneous
  Country: CN (occurrence: CN)
  Receive Date: 20170928
  Receipt Date: 20170928
  Transmission Date: 20171128
  Serious: Yes (Other)
  Sender: FDA-Public Use
  Company Number: CN-JNJFOC-20170922772

PATIENT
  Age: 28 Year
  Sex: Male
  Weight: 59 kg

DRUGS (2)
  1. RISPERDAL [Suspect]
     Active Substance: RISPERIDONE
     Indication: MENTAL DISORDER
     Route: 048
     Dates: start: 20161128, end: 20161216
  2. DEPAKINE [Concomitant]
     Active Substance: VALPROATE SODIUM
     Indication: AFFECT LABILITY
     Route: 048
     Dates: start: 20161215, end: 20161216

REACTIONS (2)
  - Drug-induced liver injury [Unknown]
  - Hepatic function abnormal [Unknown]

NARRATIVE: CASE EVENT DATE: 20161216
